FAERS Safety Report 4446696-X (Version None)
Quarter: 2004Q3

REPORT INFORMATION
  Report Type: 
  Country: None (occurrence: None)
  Receive Date: 20040908
  Receipt Date: 20040824
  Transmission Date: 20050211
  Serious: Yes (Death, Hospitalization)
  Sender: FDA-Public Use
  Company Number: 04P-163-0271538-00

PATIENT
  Age: 34 Year
  Sex: Male

DRUGS (6)
  1. KALETRA [Suspect]
     Indication: HIV INFECTION
     Dosage: ORAL
     Route: 048
     Dates: start: 20040510, end: 20040810
  2. BACTRIM [Concomitant]
  3. ACYCLOVIR [Concomitant]
  4. PANCIDE [Concomitant]
  5. MULTI-VITAMINS [Concomitant]
  6. EFAVIRENZ [Concomitant]

REACTIONS (12)
  - DIZZINESS [None]
  - DYSGEUSIA [None]
  - ENCEPHALOPATHY [None]
  - GINGIVAL BLEEDING [None]
  - HEPATIC FAILURE [None]
  - HEPATITIS [None]
  - HEPATOMEGALY [None]
  - INTERNATIONAL NORMALISED RATIO INCREASED [None]
  - MALAISE [None]
  - MUSCULOSKELETAL PAIN [None]
  - PARAESTHESIA [None]
  - WEIGHT DECREASED [None]
